FAERS Safety Report 7902987 (Version 4)
Quarter: 2014Q2

REPORT INFORMATION
  Report Type: Report from Study
  Country: US (occurrence: US)
  Receive Date: 20110418
  Receipt Date: 20140414
  Transmission Date: 20141212
  Serious: Yes (Hospitalization, Other)
  Sender: FDA-Public Use
  Company Number: US-ACTELION-A-US2011-47160

PATIENT
  Age: 35 Year
  Sex: Male

DRUGS (2)
  1. TRACLEER [Suspect]
     Indication: PULMONARY ARTERIAL HYPERTENSION
     Dosage: UNK
     Route: 048
     Dates: start: 20080910
  2. TADALAFIL [Concomitant]

REACTIONS (13)
  - Pulmonary oedema [Recovered/Resolved]
  - Renal function test abnormal [Recovering/Resolving]
  - Pulmonary hypertension [Recovering/Resolving]
  - Carbon dioxide increased [Recovering/Resolving]
  - Dyspnoea [Recovering/Resolving]
  - Fluid overload [Recovering/Resolving]
  - Respiratory failure [Recovering/Resolving]
  - Oedema peripheral [Recovering/Resolving]
  - Condition aggravated [Recovering/Resolving]
  - Localised oedema [Recovering/Resolving]
  - Weight increased [Recovering/Resolving]
  - Generalised oedema [Recovered/Resolved]
  - Sinus disorder [Unknown]
